FAERS Safety Report 5725074-7 (Version None)
Quarter: 2008Q2

REPORT INFORMATION
  Report Type: 
  Country: None (occurrence: None)
  Receive Date: 20080501
  Receipt Date: 20080418
  Transmission Date: 20081010
  Serious: Yes (Other)
  Sender: FDA-Public Use
  Company Number: DE-AMGEN-US275768

PATIENT
  Sex: Male

DRUGS (3)
  1. ENBREL [Suspect]
     Indication: POLYARTHRITIS
     Dosage: UNKNOWN
     Route: 058
  2. CORTICOSTEROID NOS [Suspect]
     Indication: POLYARTHRITIS
     Dosage: UNKNOWN
     Route: 048
  3. METHOTREXATE [Suspect]
     Indication: POLYARTHRITIS
     Dosage: UNKNOWN
     Route: 065

REACTIONS (1)
  - ACUTE LYMPHOCYTIC LEUKAEMIA [None]
